FAERS Safety Report 23430438 (Version 2)
Quarter: 2024Q1

REPORT INFORMATION
  Report Type: Spontaneous
  Country: US (occurrence: None)
  Receive Date: 20240123
  Receipt Date: 20240220
  Transmission Date: 20240409
  Serious: No
  Sender: FDA-Public Use
  Company Number: 2024A013540

PATIENT

DRUGS (1)
  1. BREZTRI [Suspect]
     Active Substance: BUDESONIDE\FORMOTEROL\GLYCOPYRROLATE
     Indication: Chronic obstructive pulmonary disease
     Dosage: 160.0UG UNKNOWN
     Route: 055

REACTIONS (4)
  - Fatigue [Unknown]
  - Visual impairment [Unknown]
  - Dyspnoea [Unknown]
  - Device use issue [Unknown]
